FAERS Safety Report 17599152 (Version 1)
Quarter: 2020Q1

REPORT INFORMATION
  Report Type: Spontaneous
  Country: SE (occurrence: SE)
  Receive Date: 20200330
  Receipt Date: 20200330
  Transmission Date: 20200409
  Serious: Yes (Death, Life-Threatening, Hospitalization, Other)
  Sender: FDA-Public Use
  Company Number: SE-EMD SERONO-23009M02SWE

PATIENT
  Age: 54 Year
  Sex: Male

DRUGS (25)
  1. OMEPRAZOLE. [Concomitant]
     Active Substance: OMEPRAZOLE
     Indication: PRODUCT USED FOR UNKNOWN INDICATION
  2. REBIF [Suspect]
     Active Substance: INTERFERON BETA-1A
     Indication: MULTIPLE SCLEROSIS
     Dosage: 0.5ML
     Route: 058
     Dates: start: 20010605, end: 20011031
  3. CIPROFLOXACIN. [Concomitant]
     Active Substance: CIPROFLOXACIN
     Indication: PRODUCT USED FOR UNKNOWN INDICATION
  4. VANCOCIN [Concomitant]
     Active Substance: VANCOMYCIN HYDROCHLORIDE
     Indication: PRODUCT USED FOR UNKNOWN INDICATION
     Dosage: POWDER FOR SOLUTION FOR INFUSION.
  5. AMPHOTERICIN B. [Concomitant]
     Active Substance: AMPHOTERICIN B
     Indication: PRODUCT USED FOR UNKNOWN INDICATION
     Dosage: POWDER FOR SOLUTION FOR INFUSION.
  6. FUROSEMIDE. [Concomitant]
     Active Substance: FUROSEMIDE
     Indication: PRODUCT USED FOR UNKNOWN INDICATION
  7. CIPROFLOXACIN. [Concomitant]
     Active Substance: CIPROFLOXACIN
     Indication: PRODUCT USED FOR UNKNOWN INDICATION
  8. CEFTAZIDIME. [Concomitant]
     Active Substance: CEFTAZIDIME
     Indication: PRODUCT USED FOR UNKNOWN INDICATION
  9. CELLCEPT [Suspect]
     Active Substance: MYCOPHENOLATE MOFETIL\MYCOPHENOLATE MOFETIL HYDROCHLORIDE
     Indication: PROPHYLAXIS
     Dosage: THERAPY START DATE : 21-DEC-2001
     Route: 048
     Dates: end: 20020113
  10. PREDNISOLON                        /00016201/ [Concomitant]
     Active Substance: PREDNISOLONE
     Indication: PRODUCT USED FOR UNKNOWN INDICATION
  11. CILASTATIN [Concomitant]
     Active Substance: CILASTATIN
     Indication: PRODUCT USED FOR UNKNOWN INDICATION
  12. CEFTAZIDIME. [Concomitant]
     Active Substance: CEFTAZIDIME
     Indication: PRODUCT USED FOR UNKNOWN INDICATION
  13. MICAFUNGIN SODIUM [Concomitant]
     Active Substance: MICAFUNGIN SODIUM
     Indication: PRODUCT USED FOR UNKNOWN INDICATION
  14. METRONIDAZOLE. [Concomitant]
     Active Substance: METRONIDAZOLE
     Indication: PRODUCT USED FOR UNKNOWN INDICATION
  15. NETILMICIN [Concomitant]
     Active Substance: NETILMICIN
     Indication: PRODUCT USED FOR UNKNOWN INDICATION
  16. GANCICLOVIR. [Concomitant]
     Active Substance: GANCICLOVIR
     Indication: CYTOMEGALOVIRUS GASTROINTESTINAL INFECTION
     Dates: start: 20011127, end: 20011210
  17. TIENAM [Concomitant]
     Active Substance: CILASTATIN SODIUM\IMIPENEM
     Indication: PRODUCT USED FOR UNKNOWN INDICATION
  18. KAVEPENIN [Suspect]
     Active Substance: PHENOXYMETHYLPENICILLIN CALCIUM
     Indication: ARTHROPOD BITE
     Dosage: THERAPY START DATE: 03-OCT-2001
     Route: 048
     Dates: end: 20011010
  19. CYMEVENE [Suspect]
     Active Substance: GANCICLOVIR
     Indication: CYTOMEGALOVIRUS INFECTION
     Dosage: THERAPY START DATE:  08-JAN-2002.
     Dates: end: 20020109
  20. GANCICLOVIR SODIUM. [Concomitant]
     Active Substance: GANCICLOVIR SODIUM
     Indication: PRODUCT USED FOR UNKNOWN INDICATION
     Dosage: POWDER FOR SOLUTION FOR INFUSION
     Dates: start: 20020108, end: 20020109
  21. REBIF [Suspect]
     Active Substance: INTERFERON BETA-1A
     Route: 058
  22. MEROPENEM. [Concomitant]
     Active Substance: MEROPENEM
     Indication: PRODUCT USED FOR UNKNOWN INDICATION
  23. AMPICILLIN [Concomitant]
     Active Substance: AMPICILLIN
     Indication: PRODUCT USED FOR UNKNOWN INDICATION
  24. ALVEDON [Concomitant]
     Active Substance: ACETAMINOPHEN
     Indication: PRODUCT USED FOR UNKNOWN INDICATION
     Route: 048
     Dates: start: 200106
  25. MYCOSTATIN [Concomitant]
     Active Substance: NYSTATIN
     Indication: PRODUCT USED FOR UNKNOWN INDICATION

REACTIONS (28)
  - Pain [Unknown]
  - Hepatocellular injury [Unknown]
  - Fatigue [Unknown]
  - Hepatic failure [Fatal]
  - Arteriosclerosis coronary artery [Fatal]
  - Cell death [Unknown]
  - Hepatocellular injury [Fatal]
  - Circulatory collapse [Unknown]
  - Tachycardia [Fatal]
  - Abdominal pain [Unknown]
  - Haemorrhage [Unknown]
  - Hypotension [Fatal]
  - Multiple organ dysfunction syndrome [Fatal]
  - Left ventricular hypertrophy [Fatal]
  - Tracheal haemorrhage [Unknown]
  - Bone marrow toxicity [Unknown]
  - Melaena [Unknown]
  - Pancytopenia [Fatal]
  - Pancreatitis haemorrhagic [Fatal]
  - Cholestasis [Unknown]
  - Tachypnoea [Fatal]
  - Liver disorder [Fatal]
  - Pulmonary oedema [Fatal]
  - Abdominal distension [Unknown]
  - Biliary tract disorder [Unknown]
  - Pancreatitis [Fatal]
  - Loss of consciousness [Unknown]
  - Blood bilirubin increased [Unknown]

NARRATIVE: CASE EVENT DATE: 20011031
